FAERS Safety Report 22872050 (Version 7)
Quarter: 2025Q2

REPORT INFORMATION
  Report Type: Report from Study
  Country: US (occurrence: US)
  Receive Date: 20230828
  Receipt Date: 20250522
  Transmission Date: 20250717
  Serious: Yes (Hospitalization, Other)
  Sender: TAKEDA
  Company Number: US-TAKEDA-2023TUS064438

PATIENT
  Age: 48 Year
  Sex: Male

DRUGS (4)
  1. TEDUGLUTIDE [Suspect]
     Active Substance: TEDUGLUTIDE
     Indication: Short-bowel syndrome
     Dosage: 0.37 MILLILITER, QD
     Dates: start: 202306
  2. TEDUGLUTIDE [Suspect]
     Active Substance: TEDUGLUTIDE
     Dosage: 0.35 MILLILITER, QD
  3. TEDUGLUTIDE [Suspect]
     Active Substance: TEDUGLUTIDE
  4. TEDUGLUTIDE [Suspect]
     Active Substance: TEDUGLUTIDE

REACTIONS (22)
  - Asthenia [Unknown]
  - Diarrhoea [Unknown]
  - Constipation [Not Recovered/Not Resolved]
  - Rectal prolapse [Unknown]
  - Blood creatinine increased [Unknown]
  - Infrequent bowel movements [Unknown]
  - Hypervolaemia [Unknown]
  - Fluid imbalance [Unknown]
  - Cardiac failure congestive [Unknown]
  - Intestinal obstruction [Unknown]
  - Abdominal discomfort [Unknown]
  - Blood pressure abnormal [Unknown]
  - Product residue present [Unknown]
  - Dehydration [Unknown]
  - Weight decreased [Not Recovered/Not Resolved]
  - Blood creatinine abnormal [Unknown]
  - Obstruction [Not Recovered/Not Resolved]
  - Anorectal disorder [Unknown]
  - Cellulitis [Unknown]
  - Abdominal distension [Unknown]
  - Nausea [Not Recovered/Not Resolved]
  - Vomiting [Not Recovered/Not Resolved]

NARRATIVE: CASE EVENT DATE: 20231013
